FAERS Safety Report 26152410 (Version 2)
Quarter: 2025Q4

REPORT INFORMATION
  Report Type: Spontaneous
  Country: US (occurrence: US)
  Receive Date: 20251214
  Receipt Date: 20251215
  Transmission Date: 20260117
  Serious: No
  Sender: JOHNSON AND JOHNSON
  Company Number: US-JNJFOC-20251217141

PATIENT

DRUGS (3)
  1. SPRAVATO [Suspect]
     Active Substance: ESKETAMINE
     Indication: Anxiety
     Route: 045
  2. SPRAVATO [Suspect]
     Active Substance: ESKETAMINE
     Indication: Depression
  3. KETAMINE [Concomitant]
     Active Substance: KETAMINE
     Indication: Product used for unknown indication

REACTIONS (5)
  - Insomnia [Unknown]
  - Drug ineffective [Unknown]
  - Impaired work ability [Unknown]
  - Feeling abnormal [Unknown]
  - Off label use [Unknown]

NARRATIVE: CASE EVENT DATE: 20251210
